FAERS Safety Report 7732158-0 (Version None)
Quarter: 2011Q3

REPORT INFORMATION
  Report Type: 
  Country: None (occurrence: None)
  Receive Date: 20110906
  Receipt Date: 20110902
  Transmission Date: 20111222
  Serious: Yes (Hospitalization)
  Sender: FDA-Public Use
  Company Number: SG-PFIZER INC-2005137129

PATIENT
  Age: 53 Year
  Sex: Male
  Weight: 73 kg

DRUGS (3)
  1. ACTRAPID PENFILL [Concomitant]
     Dosage: 15 IU, EVERY MORNING
     Route: 058
     Dates: start: 20010101
  2. ACTRAPID PENFILL [Concomitant]
     Dosage: 12 IU, EVERY NIGHT
     Dates: start: 20010101
  3. SUNITINIB MALATE [Suspect]
     Indication: GASTROINTESTINAL STROMAL TUMOUR
     Dosage: 50 MG, CYCLIC, INTERVAL DAILY
     Route: 048
     Dates: start: 20050527, end: 20050915

REACTIONS (2)
  - HAEMOTHORAX [None]
  - ABDOMINAL PAIN [None]
